FAERS Safety Report 8258138-7 (Version None)
Quarter: 2012Q2

REPORT INFORMATION
  Report Type: 
  Country: None (occurrence: None)
  Receive Date: 20120404
  Receipt Date: 20120327
  Transmission Date: 20120825
  Serious: Yes (Other)
  Sender: FDA-Public Use
  Company Number: PHEH2012US006790

PATIENT
  Sex: Male

DRUGS (3)
  1. VALTURNA [Suspect]
     Dosage: 150/160 MG, QD
  2. VITAMIN TAB [Concomitant]
  3. TOPROL-XL [Concomitant]

REACTIONS (2)
  - COLORECTAL CANCER [None]
  - DYSURIA [None]
